FAERS Safety Report 8133424-X (Version None)
Quarter: 2012Q1

REPORT INFORMATION
  Report Type: 
  Country: None (occurrence: None)
  Receive Date: 20120213
  Receipt Date: 20120210
  Transmission Date: 20120608
  Serious: Yes (Other)
  Sender: FDA-Public Use
  Company Number: SG-BAYER-2012-013771

PATIENT
  Age: 71 Year
  Sex: Male

DRUGS (1)
  1. CIPROFLOXACIN HCL [Suspect]

REACTIONS (1)
  - RENAL IMPAIRMENT [None]
